FAERS Safety Report 5096180-8 (Version None)
Quarter: 2006Q3

REPORT INFORMATION
  Report Type: 
  Country: None (occurrence: None)
  Receive Date: 20060905
  Receipt Date: 20060729
  Transmission Date: 20061208
  Serious: Yes (Other)
  Sender: FDA-Public Use
  Company Number: AT-ROCHE-457319

PATIENT
  Age: 31 Year
  Sex: Male
  Weight: 75 kg

DRUGS (2)
  1. PEG-INTERFERON ALFA 2A (RO 25-8310) [Suspect]
     Dosage: FORM REPORTED AS SYRINGE.
     Route: 058
     Dates: start: 20060310
  2. RIBAVIRIN [Suspect]
     Route: 048
     Dates: start: 20060310

REACTIONS (1)
  - EPILEPSY [None]
